FAERS Safety Report 6988274-4 (Version None)
Quarter: 2010Q3

REPORT INFORMATION
  Report Type: 
  Country: None (occurrence: None)
  Receive Date: 20100914
  Receipt Date: 20100903
  Transmission Date: 20110219
  Serious: Yes (Hospitalization, Other)
  Sender: FDA-Public Use
  Company Number: 105654

PATIENT
  Age: 26 Year
  Sex: Female

DRUGS (1)
  1. NOREPINEPHRINE BITARTRATE [Suspect]
     Indication: HYPOTENSION
     Dosage: 1-3UG/MIN

REACTIONS (11)
  - ATRIAL FIBRILLATION [None]
  - CONVULSION [None]
  - DRUG ADMINISTRATION ERROR [None]
  - EJECTION FRACTION DECREASED [None]
  - ELECTROCARDIOGRAM ST SEGMENT DEPRESSION [None]
  - HYPERTENSION [None]
  - HYPONATRAEMIA [None]
  - INCORRECT DOSE ADMINISTERED [None]
  - LEFT VENTRICULAR DYSFUNCTION [None]
  - MEDICATION ERROR [None]
  - STRESS CARDIOMYOPATHY [None]
